FAERS Safety Report 9676141 (Version 2)
Quarter: 2013Q4

REPORT INFORMATION
  Report Type: Spontaneous
  Country: US (occurrence: None)
  Receive Date: 20131105
  Receipt Date: 20131119
  Transmission Date: 20140711
  Serious: Yes (Hospitalization)
  Sender: FDA-Public Use
  Company Number: 2013US002711

PATIENT
  Age: 31 Year
  Sex: Female

DRUGS (1)
  1. ICLUSIG [Suspect]
     Indication: CHRONIC MYELOID LEUKAEMIA
     Route: 048
     Dates: start: 20130901, end: 20130906

REACTIONS (4)
  - Haemorrhoid operation [None]
  - Pancytopenia [None]
  - Infection [None]
  - White blood cell count increased [None]
